FAERS Safety Report 5689355-8 (Version None)
Quarter: 2008Q1

REPORT INFORMATION
  Report Type: 
  Country: None (occurrence: None)
  Receive Date: 20080331
  Receipt Date: 20080319
  Transmission Date: 20080703
  Serious: Yes (Other)
  Sender: FDA-Public Use
  Company Number: US-PFIZER INC-2006027021

PATIENT
  Sex: Male
  Weight: 81.6 kg

DRUGS (2)
  1. VIAGRA [Suspect]
     Indication: ERECTILE DYSFUNCTION
     Route: 048
  2. CRESTOR [Concomitant]
     Route: 065

REACTIONS (4)
  - ERECTION INCREASED [None]
  - HERNIA REPAIR [None]
  - PROSTATIC DISORDER [None]
  - PROSTATOMEGALY [None]
